FAERS Safety Report 9719219 (Version 2)
Quarter: 2014Q3

REPORT INFORMATION
  Report Type: Spontaneous
  Country: US (occurrence: US)
  Receive Date: 20131127
  Receipt Date: 20140908
  Transmission Date: 20150326
  Serious: Yes (Other)
  Sender: FDA-Public Use
  Company Number: PHEH2013US024506

PATIENT
  Sex: Male

DRUGS (2)
  1. TEKTURNA [Suspect]
     Active Substance: ALISKIREN HEMIFUMARATE
     Dosage: 150-300 MG, QD
     Dates: start: 200812, end: 201103
  2. COZAAR [Concomitant]
     Active Substance: LOSARTAN POTASSIUM
     Dosage: UNK UKN, UNK

REACTIONS (18)
  - Cerebrovascular accident [Unknown]
  - Feeling cold [Unknown]
  - Disability [Unknown]
  - Blood potassium increased [Unknown]
  - Anxiety [Unknown]
  - Hypotension [Unknown]
  - Tinnitus [Unknown]
  - Injury [Unknown]
  - Arthralgia [Unknown]
  - Anhedonia [Unknown]
  - Deafness bilateral [Unknown]
  - Renal failure chronic [Unknown]
  - Pain [Unknown]
  - Hearing impaired [Unknown]
  - Ischaemic cerebral infarction [Unknown]
  - Renal impairment [Unknown]
  - Myalgia [Unknown]
  - Cardiac disorder [Unknown]

NARRATIVE: CASE EVENT DATE: 2009
